FAERS Safety Report 9289262 (Version 1)
Quarter: 2013Q2

REPORT INFORMATION
  Report Type: Spontaneous
  Country: US (occurrence: US)
  Receive Date: 20130514
  Receipt Date: 20130514
  Transmission Date: 20140414
  Serious: No
  Sender: FDA-Public Use
  Company Number: US-ABBOTT-12P-163-0984278-00

PATIENT
  Age: 53 Year
  Sex: Female
  Weight: 54.48 kg

DRUGS (3)
  1. PROMETRIUM [Suspect]
     Indication: MENOPAUSE
     Dosage: AT BEDTIME
     Dates: start: 201203, end: 20120909
  2. PROMETRIUM [Suspect]
     Dosage: TAKE FOR TEN DAYS EACH MONTH
     Dates: start: 201201, end: 201203
  3. ESTROGEN [Concomitant]
     Indication: ADJUVANT THERAPY
     Dates: start: 201201

REACTIONS (7)
  - Anxiety [Not Recovered/Not Resolved]
  - Memory impairment [Not Recovered/Not Resolved]
  - Confusional state [Not Recovered/Not Resolved]
  - Asthenia [Not Recovered/Not Resolved]
  - Panic attack [Recovering/Resolving]
  - Palpitations [Not Recovered/Not Resolved]
  - Off label use [Unknown]
